FAERS Safety Report 22011472 (Version 1)
Quarter: 2023Q1

REPORT INFORMATION
  Report Type: Spontaneous
  Country: IN (occurrence: IN)
  Receive Date: 20230220
  Receipt Date: 20230220
  Transmission Date: 20230418
  Serious: Yes (Death)
  Sender: FDA-Public Use
  Company Number: IN-GE HEALTHCARE-2023CSU000888

PATIENT
  Age: 22 Year
  Sex: Female
  Weight: 68 kg

DRUGS (8)
  1. OMNIPAQUE [Suspect]
     Active Substance: IOHEXOL
     Indication: Computerised tomogram abdomen
     Dosage: 70 ML, SINGLE
     Route: 042
     Dates: start: 20230209, end: 20230209
  2. OMNIPAQUE [Suspect]
     Active Substance: IOHEXOL
     Indication: Pyrexia
  3. OMNIPAQUE [Suspect]
     Active Substance: IOHEXOL
     Indication: Abdominal pain lower
  4. OMNIPAQUE [Suspect]
     Active Substance: IOHEXOL
     Indication: Abdominal pain
  5. OMNIPAQUE [Suspect]
     Active Substance: IOHEXOL
     Indication: Computerised tomogram abdomen
     Dosage: UNK, SINGLE
     Route: 048
     Dates: start: 20230209, end: 20230209
  6. OMNIPAQUE [Suspect]
     Active Substance: IOHEXOL
     Indication: Pyrexia
  7. OMNIPAQUE [Suspect]
     Active Substance: IOHEXOL
     Indication: Abdominal pain lower
  8. OMNIPAQUE [Suspect]
     Active Substance: IOHEXOL
     Indication: Abdominal pain

REACTIONS (3)
  - Dyspnoea [Fatal]
  - Abnormal behaviour [Recovered/Resolved]
  - Chills [Recovered/Resolved]

NARRATIVE: CASE EVENT DATE: 20230209
